FAERS Safety Report 8386993-9 (Version None)
Quarter: 2012Q2

REPORT INFORMATION
  Report Type: 
  Country: None (occurrence: None)
  Receive Date: 20120522
  Receipt Date: 20120522
  Transmission Date: 20120825
  Serious: Yes (Other)
  Sender: FDA-Public Use
  Company Number: None

PATIENT
  Age: 62 Year
  Sex: Male
  Weight: 72.5755 kg

DRUGS (1)
  1. QUETIAPINE [Suspect]
     Indication: MAJOR DEPRESSION
     Dosage: 200MG AT HS PO
     Route: 048
     Dates: start: 20120420, end: 20120427

REACTIONS (2)
  - VOMITING [None]
  - PRODUCT SUBSTITUTION ISSUE [None]
